FAERS Safety Report 5512437-8 (Version None)
Quarter: 2007Q4

REPORT INFORMATION
  Report Type: 
  Country: None (occurrence: None)
  Receive Date: 20071112
  Receipt Date: 20061127
  Transmission Date: 20080405
  Serious: No
  Sender: FDA-Public Use
  Company Number: A0628713A

PATIENT
  Sex: Male

DRUGS (3)
  1. AVANDAMET [Suspect]
     Route: 048
  2. LIPID [Concomitant]
  3. LOPID [Concomitant]

REACTIONS (2)
  - DRY MOUTH [None]
  - POLLAKIURIA [None]
